FAERS Safety Report 9310964 (Version 1)
Quarter: 2013Q2

REPORT INFORMATION
  Report Type: Spontaneous
  Country: AU (occurrence: AU)
  Receive Date: 20130528
  Receipt Date: 20130528
  Transmission Date: 20140414
  Serious: Yes (Hospitalization, Other)
  Sender: FDA-Public Use
  Company Number: AU-JNJFOC-20130514209

PATIENT
  Age: 40 Year
  Sex: Male

DRUGS (3)
  1. XARELTO [Suspect]
     Indication: THROMBOSIS PROPHYLAXIS
     Route: 048
     Dates: start: 201304
  2. WARFARIN [Concomitant]
     Indication: THROMBOSIS PROPHYLAXIS
     Route: 065
  3. MICARDIS [Concomitant]
     Indication: HYPERTENSION
     Route: 065

REACTIONS (2)
  - Superior sagittal sinus thrombosis [Unknown]
  - Headache [Unknown]
